FAERS Safety Report 6140665-X (Version None)
Quarter: 2009Q1

REPORT INFORMATION
  Report Type: 
  Country: None (occurrence: None)
  Receive Date: 20090331
  Receipt Date: 20090320
  Transmission Date: 20090719
  Serious: Yes (Death, Other)
  Sender: FDA-Public Use
  Company Number: ADE2009-0499

PATIENT
  Age: 61 Year
  Sex: Male

DRUGS (5)
  1. MIRTAZAPINE [Suspect]
  2. CITALOPRAM HYDROBROMIDE [Suspect]
  3. DURAGESIC-100 [Suspect]
  4. CODEINE SUL HYT [Suspect]
  5. HYDROCODONE BITARTRATE [Suspect]

REACTIONS (5)
  - ANALGESIC DRUG LEVEL ABOVE THERAPEUTIC [None]
  - DRUG TOXICITY [None]
  - INFLAMMATION [None]
  - LIVER DISORDER [None]
  - PULMONARY OEDEMA [None]
